FAERS Safety Report 7726676-9 (Version None)
Quarter: 2011Q3

REPORT INFORMATION
  Report Type: 
  Country: None (occurrence: None)
  Receive Date: 20110902
  Receipt Date: 20110825
  Transmission Date: 20111222
  Serious: Yes (Other)
  Sender: FDA-Public Use
  Company Number: US-ASTRAZENECA-2011SE12574

PATIENT
  Age: 575 Month
  Sex: Male
  Weight: 123.8 kg

DRUGS (17)
  1. GEMFIBROZIL [Concomitant]
     Dates: start: 20080214
  2. ATENOLOL [Concomitant]
     Dates: start: 20071024
  3. OMEPRAZOLE MAGNESIUM [Concomitant]
     Route: 048
     Dates: start: 20080214
  4. SEROQUEL [Suspect]
     Route: 048
     Dates: start: 20071001
  5. COZAAR [Concomitant]
     Route: 048
     Dates: start: 20080214
  6. GABAPENTIN [Concomitant]
     Indication: MIGRAINE
     Dates: start: 20071007
  7. LEXAPRO [Concomitant]
     Dates: start: 20071015
  8. ALPRAZOLAM [Concomitant]
     Dates: start: 20071102
  9. GABAPENTIN [Concomitant]
     Dosage: 600 MG TAKE 2 TABS Q AM AND 3 TABS Q PM
     Route: 048
     Dates: start: 20080214
  10. GEMFIBROZIL [Concomitant]
     Dates: start: 20071024
  11. ATENOLOL [Concomitant]
     Route: 048
     Dates: start: 20080214
  12. HYDROCHLOROT [Concomitant]
     Dates: start: 20071027
  13. CLONAZEPAM [Concomitant]
     Dates: start: 20071027
  14. HYDROCHLOROT [Concomitant]
     Dates: start: 20080214
  15. BUPROPION HCL [Concomitant]
     Dates: start: 20071027
  16. BUPROPION HCL [Concomitant]
     Route: 048
     Dates: start: 20080214
  17. SEROQUEL [Suspect]
     Route: 048
     Dates: start: 20071010

REACTIONS (6)
  - PANCREATITIS [None]
  - TYPE 2 DIABETES MELLITUS [None]
  - DIABETIC COMA [None]
  - PANCREATIC DISORDER [None]
  - PANCREATIC INSUFFICIENCY [None]
  - ENDOCRINE PANCREATIC DISORDER [None]
